FAERS Safety Report 7258724-7 (Version None)
Quarter: 2011Q1

REPORT INFORMATION
  Report Type: 
  Country: None (occurrence: None)
  Receive Date: 20110129
  Receipt Date: 20100517
  Transmission Date: 20110831
  Serious: No
  Sender: FDA-Public Use
  Company Number: US-ABBOTT-10P-163-0645515-00

PATIENT
  Sex: Male
  Weight: 82.628 kg

DRUGS (2)
  1. HUMIRA [Suspect]
     Indication: PSORIASIS
     Dates: start: 20100508, end: 20100508
  2. HUMIRA [Suspect]
     Dates: start: 20100516, end: 20100516

REACTIONS (5)
  - INCORRECT DOSE ADMINISTERED [None]
  - HEADACHE [None]
  - DIARRHOEA [None]
  - MIGRAINE [None]
  - ABDOMINAL PAIN UPPER [None]
